FAERS Safety Report 9171404 (Version 2)
Quarter: 2013Q1

REPORT INFORMATION
  Report Type: Spontaneous
  Country: US (occurrence: None)
  Receive Date: 20130208
  Receipt Date: 20130307
  Transmission Date: 20140127
  Serious: Yes (Other)
  Sender: FDA-Public Use
  Company Number: 2250051-2013-00022

PATIENT
  Age: 34 Year
  Sex: Female
  Weight: 53.43 kg

DRUGS (1)
  1. RHOGAM ULTRA-FILTERED PLUS [Suspect]
     Dates: start: 20130128

REACTIONS (4)
  - Burning sensation [None]
  - Ear discomfort [None]
  - Injection site pain [None]
  - Wrong drug administered [None]
